FAERS Safety Report 10007521 (Version 2)
Quarter: 2014Q1

REPORT INFORMATION
  Report Type: Spontaneous
  Country: DK (occurrence: DE)
  Receive Date: 20140313
  Receipt Date: 20140313
  Transmission Date: 20141002
  Serious: Yes (Life-Threatening, Hospitalization)
  Sender: FDA-Public Use
  Company Number: DE-FRI-1000049982

PATIENT
  Age: 28 Year
  Sex: Female

DRUGS (6)
  1. CITALOPRAM [Suspect]
     Indication: DEPRESSION
     Dosage: 20 MG
     Dates: start: 20130418, end: 20130713
  2. L-THYROXIN [Concomitant]
     Dosage: 175 MICROGRAMS
  3. BISOHEXAL [Concomitant]
     Dosage: 5 MG
  4. RAMIPRIL [Concomitant]
     Dosage: 2.5 MG
  5. LANTUS [Concomitant]
     Dosage: 30 IU
  6. NOVORAPID [Concomitant]

REACTIONS (2)
  - Urinary retention [Not Recovered/Not Resolved]
  - Wound dehiscence [Not Recovered/Not Resolved]
